FAERS Safety Report 5743126-2 (Version None)
Quarter: 2008Q2

REPORT INFORMATION
  Report Type: 
  Country: None (occurrence: None)
  Receive Date: 20080519
  Receipt Date: 20080507
  Transmission Date: 20081010
  Serious: Yes (Hospitalization)
  Sender: FDA-Public Use
  Company Number: US-ELI_LILLY_AND_COMPANY-US200805002012

PATIENT
  Sex: Female

DRUGS (6)
  1. CYMBALTA [Suspect]
     Dosage: 30 MG, UNK
     Dates: start: 20080501, end: 20080501
  2. ZOCOR [Concomitant]
     Dosage: UNK, 2/D
  3. MAXZIDE [Concomitant]
     Dosage: 0.5 D/F, UNK
  4. AXID [Concomitant]
     Dosage: 0.5 D/F, UNK
  5. TARZAN [Concomitant]
  6. ESTRACE [Concomitant]

REACTIONS (3)
  - CHOKING SENSATION [None]
  - HEADACHE [None]
  - TREMOR [None]
